FAERS Safety Report 14587208 (Version 3)
Quarter: 2018Q2

REPORT INFORMATION
  Report Type: Spontaneous
  Country: JP (occurrence: JP)
  Receive Date: 20180301
  Receipt Date: 20180427
  Transmission Date: 20180711
  Serious: Yes (Death)
  Sender: FDA-Public Use
  Company Number: JP-ELI_LILLY_AND_COMPANY-JP201802011366

PATIENT
  Age: 68 Year
  Sex: Female
  Weight: 46 kg

DRUGS (3)
  1. CYRAMZA [Suspect]
     Active Substance: RAMUCIRUMAB
     Indication: LUNG SQUAMOUS CELL CARCINOMA STAGE II
     Dosage: 460 MG, OTHER
     Route: 041
     Dates: start: 20180202, end: 20180202
  2. ONETAXOTERE [Concomitant]
     Active Substance: DOCETAXEL
     Indication: LUNG SQUAMOUS CELL CARCINOMA STAGE II
     Dosage: 80 MG, OTHER
     Route: 041
     Dates: start: 20180202, end: 20180202
  3. G LASTA [Concomitant]
     Active Substance: PEGFILGRASTIM
     Indication: PROPHYLAXIS
     Dosage: 3.6 MG, UNK
     Route: 058
     Dates: start: 20180204, end: 20180204

REACTIONS (2)
  - Obstructive airways disorder [Fatal]
  - Oesophageal haemorrhage [Fatal]

NARRATIVE: CASE EVENT DATE: 20180221
